FAERS Safety Report 7584002-2 (Version None)
Quarter: 2011Q2

REPORT INFORMATION
  Report Type: 
  Country: None (occurrence: None)
  Receive Date: 20110531
  Receipt Date: 20101206
  Transmission Date: 20111010
  Serious: Yes (Hospitalization)
  Sender: FDA-Public Use
  Company Number: 316580

PATIENT
  Age: 41 Year
  Sex: Female
  Weight: 61.2 kg

DRUGS (2)
  1. VAGIFEM [Suspect]
     Indication: OESTROGEN REPLACEMENT THERAPY
     Dosage: 25 UG, BIW, VAGINAL
     Route: 067
     Dates: start: 20100706
  2. ALLEGRA /01314201/ (FEXOFENADINE) [Concomitant]

REACTIONS (2)
  - CHOLECYSTECTOMY [None]
  - WEIGHT INCREASED [None]
